FAERS Safety Report 22520739 (Version 2)
Quarter: 2023Q2

REPORT INFORMATION
  Report Type: Spontaneous
  Country: CL (occurrence: CL)
  Receive Date: 20230605
  Receipt Date: 20230622
  Transmission Date: 20230721
  Serious: Yes (Other)
  Sender: FDA-Public Use
  Company Number: CL-PFIZER INC-PV202300097883

PATIENT
  Age: 72 Year
  Sex: Female

DRUGS (5)
  1. XELJANZ [Suspect]
     Active Substance: TOFACITINIB CITRATE
     Indication: Rheumatoid arthritis
     Dosage: 5 MG, 2X/DAY
     Dates: start: 202203
  2. PREDNISONE [Concomitant]
     Active Substance: PREDNISONE
     Indication: Rheumatoid arthritis
  3. TRAMADOL [Concomitant]
     Active Substance: TRAMADOL
     Indication: Rheumatoid arthritis
  4. OMEPRAZOLE [Concomitant]
     Active Substance: OMEPRAZOLE
  5. D^VIDA [Concomitant]

REACTIONS (8)
  - Fall [Unknown]
  - Upper limb fracture [Unknown]
  - Wrist fracture [Unknown]
  - Muscle atrophy [Unknown]
  - Arthropathy [Unknown]
  - Muscular weakness [Unknown]
  - Gait disturbance [Unknown]
  - Depression [Unknown]

NARRATIVE: CASE EVENT DATE: 20221101
